FAERS Safety Report 5887898-5 (Version None)
Quarter: 2008Q3

REPORT INFORMATION
  Report Type: 
  Country: None (occurrence: None)
  Receive Date: 20080918
  Receipt Date: 20080908
  Transmission Date: 20090109
  Serious: Yes (Hospitalization, Disabling)
  Sender: FDA-Public Use
  Company Number: A0744022A

PATIENT
  Age: 48 Year
  Sex: Male
  Weight: 123.2 kg

DRUGS (23)
  1. AVANDIA [Suspect]
     Indication: TYPE 2 DIABETES MELLITUS
     Dosage: 8MG PER DAY
     Route: 048
     Dates: start: 19970101, end: 20070201
  2. REZULIN [Concomitant]
     Dates: start: 19970807, end: 20001120
  3. GLUCOPHAGE [Concomitant]
     Dates: start: 19980113, end: 20020221
  4. METFORMIN HCL [Concomitant]
     Dates: start: 19990111, end: 20060528
  5. INSULIN INSULATARD NPH NORDISK [Concomitant]
     Dates: start: 19970101, end: 20080723
  6. AMARYL [Concomitant]
     Dates: start: 19990301
  7. GLIPIZIDE [Concomitant]
     Dates: start: 19980113, end: 20080723
  8. GLUCOTROL XL [Concomitant]
     Dates: start: 20000908, end: 20010611
  9. LIPITOR [Concomitant]
     Dates: start: 20000221
  10. LISINOPRIL [Concomitant]
  11. TRAMADOL HCL [Concomitant]
  12. SIMVASTATIN [Concomitant]
  13. DILTIAZEM [Concomitant]
  14. COMBIVENT [Concomitant]
  15. PLAVIX [Concomitant]
  16. COVERA-HS [Concomitant]
  17. ASPIRIN [Concomitant]
  18. PRINIVIL [Concomitant]
  19. LOPRESSOR [Concomitant]
  20. LEVAQUIN [Concomitant]
  21. PROVENTIL [Concomitant]
  22. PERCOCET [Concomitant]
  23. GLUCOPHAGE [Concomitant]

REACTIONS (5)
  - ATRIOVENTRICULAR BLOCK [None]
  - CARDIAC FAILURE CONGESTIVE [None]
  - CEREBROVASCULAR ACCIDENT [None]
  - CORONARY ARTERY OCCLUSION [None]
  - MYOCARDIAL INFARCTION [None]
